FAERS Safety Report 17187892 (Version 1)
Quarter: 2019Q4

REPORT INFORMATION
  Report Type: Spontaneous
  Country: SE (occurrence: SE)
  Receive Date: 20191221
  Receipt Date: 20191221
  Transmission Date: 20200122
  Serious: Yes (Other)
  Sender: FDA-Public Use
  Company Number: SE-009507513-1912SWE008352

PATIENT
  Sex: Male

DRUGS (5)
  1. MIRTAZAPINE. [Suspect]
     Active Substance: MIRTAZAPINE
     Dosage: 11 DOSAGE FORM, ONCE, TOTAL
     Route: 048
     Dates: start: 20190129, end: 20190129
  2. OXYCODONE [Suspect]
     Active Substance: OXYCODONE
     Dosage: 1 DOSAGE FORM, ONCE, TOTAL
     Route: 048
     Dates: start: 20190129, end: 20190129
  3. PROPAVAN [Suspect]
     Active Substance: PROPIOMAZINE
     Dosage: 1 DOSAGE FORM, ONCE, TOTAL
     Route: 048
     Dates: start: 20190129, end: 20190129
  4. CANNABIDIOL [Suspect]
     Active Substance: CANNABIDIOL
     Dosage: 1 DOSAGE FORM, ONCE, TOTAL
     Route: 048
     Dates: start: 20190129, end: 20190129
  5. SERTRALINE HYDROCHLORIDE. [Suspect]
     Active Substance: SERTRALINE HYDROCHLORIDE
     Dosage: 1 DOSAGE FORM, ONCE, TOTAL
     Route: 048
     Dates: start: 20190129, end: 20190129

REACTIONS (6)
  - Hallucination [Unknown]
  - Tachycardia [Unknown]
  - Intentional overdose [Unknown]
  - Fatigue [Unknown]
  - Intentional self-injury [Unknown]
  - Loss of consciousness [Unknown]

NARRATIVE: CASE EVENT DATE: 20190129
